FAERS Safety Report 22651678 (Version 1)
Quarter: 2023Q2

REPORT INFORMATION
  Report Type: Spontaneous
  Country: US (occurrence: US)
  Receive Date: 20230628
  Receipt Date: 20230628
  Transmission Date: 20230722
  Serious: No
  Sender: FDA-Public Use
  Company Number: US-CTI BIOPHARMA-2023US03509

PATIENT

DRUGS (11)
  1. VONJO [Suspect]
     Active Substance: PACRITINIB
     Indication: Myelodysplastic syndrome
     Dosage: 200 MG, BID
     Route: 048
     Dates: start: 20230322
  2. ALLOPURINOL [Concomitant]
     Active Substance: ALLOPURINOL
  3. FOSINOPRIL [Concomitant]
     Active Substance: FOSINOPRIL
  4. METOPROLOL [Concomitant]
     Active Substance: METOPROLOL
  5. JAKAFI [Concomitant]
     Active Substance: RUXOLITINIB
  6. ONDANSETRON [Concomitant]
     Active Substance: ONDANSETRON
  7. CRESTOR [Concomitant]
     Active Substance: ROSUVASTATIN CALCIUM
  8. REGLAN [Concomitant]
     Active Substance: METOCLOPRAMIDE HYDROCHLORIDE
  9. MORPHINE SULFATE [Concomitant]
     Active Substance: MORPHINE SULFATE
  10. BACTRIM [Concomitant]
     Active Substance: SULFAMETHOXAZOLE\TRIMETHOPRIM
  11. ZOFRAN [Concomitant]
     Active Substance: ONDANSETRON HYDROCHLORIDE

REACTIONS (7)
  - Fatigue [Unknown]
  - Hyperhidrosis [Unknown]
  - Malaise [Unknown]
  - Night sweats [Unknown]
  - Off label use [Unknown]
  - Adverse drug reaction [Unknown]
  - Nausea [Unknown]
